FAERS Safety Report 9280750 (Version 2)
Quarter: 2013Q2

REPORT INFORMATION
  Report Type: Spontaneous
  Country: US (occurrence: US)
  Receive Date: 20130509
  Receipt Date: 20130524
  Transmission Date: 20140414
  Serious: No
  Sender: FDA-Public Use
  Company Number: US-PFIZER INC-2013141043

PATIENT
  Age: 82 Year
  Sex: Male
  Weight: 99 kg

DRUGS (2)
  1. NORVASC [Suspect]
     Indication: CARDIAC DISORDER
     Dosage: 5 MG, 2X/DAY
     Route: 048
  2. LIPITOR [Concomitant]
     Indication: BLOOD CHOLESTEROL ABNORMAL
     Dosage: 10 MG, 2X/DAY

REACTIONS (1)
  - Hearing impaired [Not Recovered/Not Resolved]
